FAERS Safety Report 8461729-1 (Version None)
Quarter: 2012Q2

REPORT INFORMATION
  Report Type: 
  Country: None (occurrence: None)
  Receive Date: 20120625
  Receipt Date: 20120620
  Transmission Date: 20120825
  Serious: Yes (Hospitalization)
  Sender: FDA-Public Use
  Company Number: GB-AMGEN-GBRCT2011045084

PATIENT
  Age: 75 Year
  Sex: Female
  Weight: 78.6 kg

DRUGS (11)
  1. DEXAMETHASONE [Concomitant]
     Dosage: 8 MG, UNK
     Dates: start: 20110701, end: 20120118
  2. ANTIHYPERTENSIVES [Concomitant]
     Indication: HYPERTENSION
  3. DENOSUMAB [Suspect]
     Indication: BREAST CANCER
     Dosage: 120 MG, Q4WK
     Route: 058
     Dates: start: 20110803
  4. FLUCONAZOLE [Concomitant]
     Dosage: 50 MG, UNK
     Route: 048
     Dates: start: 20110712
  5. DOMPERIDONE [Concomitant]
     Dosage: 20 MG, UNK
     Route: 048
     Dates: start: 20110701, end: 20120118
  6. ONDANSETRON [Concomitant]
     Dosage: 8 MG, UNK
     Route: 042
     Dates: start: 20110701, end: 20120118
  7. DIFFLAM [Concomitant]
     Dosage: 10 ML, UNK
     Route: 048
     Dates: start: 20110711
  8. CIPROFLOXACIN [Concomitant]
     Dosage: 250 MG, UNK
     Route: 048
     Dates: start: 20110719
  9. CALCIUM CARBONATE [Concomitant]
     Dosage: 10 MUG, UNK
     Route: 048
     Dates: start: 20110803
  10. EPIRUBICIN [Concomitant]
     Dosage: 194 MG, Q3WK
     Route: 042
     Dates: start: 20110711, end: 20110824
  11. LEVOTHYROXINE SODIUM [Concomitant]

REACTIONS (1)
  - DIABETES MELLITUS [None]
